FAERS Safety Report 7763181-8 (Version None)
Quarter: 2011Q3

REPORT INFORMATION
  Report Type: 
  Country: None (occurrence: None)
  Receive Date: 20110920
  Receipt Date: 20110912
  Transmission Date: 20111222
  Serious: Yes (Other)
  Sender: FDA-Public Use
  Company Number: PHEH2011US04091

PATIENT
  Age: 56 Year
  Sex: Female

DRUGS (5)
  1. REBIF [Suspect]
     Dosage: UNK UKN, UNK
  2. COPAXONE [Suspect]
     Dosage: UNK UKN, UNK
  3. BETASERON [Suspect]
     Dosage: UNK UKN, UNK
  4. VITAMINS NOS [Concomitant]
     Dosage: UNK UKN, UNK
  5. GILENYA [Suspect]
     Dosage: 0.5 MG, QD

REACTIONS (4)
  - SCAR [None]
  - AMNESIA [None]
  - FEELING ABNORMAL [None]
  - MUSCULAR WEAKNESS [None]
